FAERS Safety Report 12358114 (Version 1)
Quarter: 2016Q2

REPORT INFORMATION
  Report Type: Spontaneous
  Country: US (occurrence: US)
  Receive Date: 20160512
  Receipt Date: 20160512
  Transmission Date: 20160815
  Serious: No
  Sender: FDA-Public Use
  Company Number: US-ASPEN PHARMA TRADING LIMITED US-AG-2015-008736

PATIENT
  Age: 68 Year
  Sex: Male

DRUGS (2)
  1. CHLORAMBUCIL [Suspect]
     Active Substance: CHLORAMBUCIL
     Indication: LINEAR IGA DISEASE
     Route: 065
  2. DAPSONE. [Concomitant]
     Active Substance: DAPSONE
     Indication: LINEAR IGA DISEASE
     Route: 065

REACTIONS (1)
  - Off label use [Unknown]
